FAERS Safety Report 23521714 (Version 1)
Quarter: 2024Q1

REPORT INFORMATION
  Report Type: Spontaneous
  Country: BE (occurrence: BE)
  Receive Date: 20240214
  Receipt Date: 20240214
  Transmission Date: 20240410
  Serious: Yes (Other)
  Sender: FDA-Public Use
  Company Number: BE-MYLANLABS-2024M1013704

PATIENT
  Age: 70 Year

DRUGS (14)
  1. CLARITHROMYCIN [Suspect]
     Active Substance: CLARITHROMYCIN
     Indication: Intervertebral discitis
     Dosage: UNK
     Route: 065
  2. CLARITHROMYCIN [Suspect]
     Active Substance: CLARITHROMYCIN
     Indication: Atypical mycobacterial infection
  3. LINEZOLID [Suspect]
     Active Substance: LINEZOLID
     Indication: Intervertebral discitis
     Dosage: UNK
     Route: 065
  4. LINEZOLID [Suspect]
     Active Substance: LINEZOLID
     Indication: Atypical mycobacterial infection
  5. ETHAMBUTOL [Suspect]
     Active Substance: ETHAMBUTOL HYDROCHLORIDE
     Indication: Intervertebral discitis
     Dosage: UNK
     Route: 065
  6. ETHAMBUTOL [Suspect]
     Active Substance: ETHAMBUTOL HYDROCHLORIDE
     Indication: Atypical mycobacterial infection
  7. RIFABUTIN [Suspect]
     Active Substance: RIFABUTIN
     Indication: Intervertebral discitis
     Dosage: UNK
     Route: 065
  8. RIFABUTIN [Suspect]
     Active Substance: RIFABUTIN
     Indication: Atypical mycobacterial infection
  9. MOXIFLOXACIN [Suspect]
     Active Substance: MOXIFLOXACIN
     Indication: Intervertebral discitis
     Dosage: UNK
     Route: 065
  10. MOXIFLOXACIN [Suspect]
     Active Substance: MOXIFLOXACIN
     Indication: Atypical mycobacterial infection
  11. CEFTRIAXONE [Suspect]
     Active Substance: CEFTRIAXONE\CEFTRIAXONE SODIUM
     Indication: Intervertebral discitis
     Dosage: 2 GRAM, BID
     Route: 065
  12. CEFTRIAXONE [Suspect]
     Active Substance: CEFTRIAXONE\CEFTRIAXONE SODIUM
     Indication: Atypical mycobacterial infection
  13. PROTIONAMIDE [Suspect]
     Active Substance: PROTIONAMIDE
     Indication: Intervertebral discitis
     Dosage: UNK
     Route: 065
  14. PROTIONAMIDE [Suspect]
     Active Substance: PROTIONAMIDE
     Indication: Atypical mycobacterial infection

REACTIONS (2)
  - Drug reaction with eosinophilia and systemic symptoms [Unknown]
  - Myelosuppression [Unknown]
